FAERS Safety Report 12010327 (Version 1)
Quarter: 2016Q1

REPORT INFORMATION
  Report Type: Spontaneous
  Country: IE (occurrence: IE)
  Receive Date: 20160205
  Receipt Date: 20160205
  Transmission Date: 20160526
  Serious: Yes (Hospitalization)
  Sender: FDA-Public Use
  Company Number: IE-PFIZER INC-2016061777

PATIENT
  Sex: Female

DRUGS (2)
  1. PALBOCICLIB [Suspect]
     Active Substance: PALBOCICLIB
     Indication: BREAST CANCER
     Dosage: UNK
     Dates: start: 201512
  2. PALBOCICLIB [Interacting]
     Active Substance: PALBOCICLIB
     Indication: BONE CANCER

REACTIONS (2)
  - Lower respiratory tract infection [Unknown]
  - Food interaction [Unknown]
